FAERS Safety Report 6796230-4 (Version None)
Quarter: 2010Q2

REPORT INFORMATION
  Report Type: 
  Country: None (occurrence: None)
  Receive Date: 20100624
  Receipt Date: 20100624
  Transmission Date: 20101027
  Serious: Yes (Hospitalization, Other)
  Sender: FDA-Public Use
  Company Number: None

PATIENT
  Age: 56 Year
  Sex: Female
  Weight: 101.6057 kg

DRUGS (1)
  1. MAGNEVIST [Suspect]

REACTIONS (10)
  - ABDOMINAL PAIN UPPER [None]
  - ASPARTATE AMINOTRANSFERASE INCREASED [None]
  - BLOOD BILIRUBIN INCREASED [None]
  - DECREASED APPETITE [None]
  - FATIGUE [None]
  - FLANK PAIN [None]
  - HEPATIC PAIN [None]
  - HYPERTENSION [None]
  - NAUSEA [None]
  - RENAL PAIN [None]
